FAERS Safety Report 5164470-6 (Version None)
Quarter: 2006Q4

REPORT INFORMATION
  Report Type: 
  Country: None (occurrence: None)
  Receive Date: 20061205
  Receipt Date: 20061128
  Transmission Date: 20070319
  Serious: Yes (Other)
  Sender: FDA-Public Use
  Company Number: FR-ROCHE-472955

PATIENT
  Age: 52 Year
  Sex: Female

DRUGS (4)
  1. PEG-INTERFERON ALFA NOS [Suspect]
     Indication: HEPATITIS C
     Route: 065
     Dates: start: 20030615, end: 20040915
  2. RIBAVIRIN [Suspect]
     Indication: HEPATITIS C
     Route: 065
     Dates: start: 20030615, end: 20040915
  3. ATORVASTATIN CALCIUM [Concomitant]
  4. PAROXETINE HCL [Concomitant]
     Indication: DEPRESSION

REACTIONS (1)
  - GRANULOMA ANNULARE [None]
